FAERS Safety Report 11503143 (Version 1)
Quarter: 2015Q3

REPORT INFORMATION
  Report Type: Spontaneous
  Country: US (occurrence: US)
  Receive Date: 20150914
  Receipt Date: 20150914
  Transmission Date: 20151125
  Serious: No
  Sender: FDA-Public Use
  Company Number: US-ASTELLAS-2015US030904

PATIENT
  Sex: Male

DRUGS (1)
  1. XTANDI [Suspect]
     Active Substance: ENZALUTAMIDE
     Indication: PROSTATE CANCER
     Route: 065

REACTIONS (7)
  - Musculoskeletal stiffness [Unknown]
  - Fatigue [Unknown]
  - Underdose [Unknown]
  - Muscular weakness [Unknown]
  - Decreased appetite [Unknown]
  - Joint swelling [Recovered/Resolved]
  - Diarrhoea [Unknown]
